FAERS Safety Report 24078776 (Version 1)
Quarter: 2024Q3

REPORT INFORMATION
  Report Type: Spontaneous
  Country: US (occurrence: US)
  Receive Date: 20240711
  Receipt Date: 20240711
  Transmission Date: 20241017
  Serious: Yes (Other)
  Sender: ORGANON
  Company Number: US-ORGANON-O2407USA000969

PATIENT

DRUGS (1)
  1. SINGULAIR [Suspect]
     Active Substance: MONTELUKAST SODIUM
     Indication: Asthma
     Dosage: UNK
     Route: 048

REACTIONS (4)
  - Suicidal ideation [Recovering/Resolving]
  - Depression [Recovering/Resolving]
  - Tremor [Recovering/Resolving]
  - Sleep terror [Recovering/Resolving]
